FAERS Safety Report 12100728 (Version 1)
Quarter: 2016Q1

REPORT INFORMATION
  Report Type: Spontaneous
  Country: US (occurrence: US)
  Receive Date: 20160222
  Receipt Date: 20160222
  Transmission Date: 20160526
  Serious: No
  Sender: FDA-Public Use
  Company Number: US-SHIRE-US201601658

PATIENT
  Age: 42 Year
  Sex: Female
  Weight: 145.58 kg

DRUGS (5)
  1. LOSARTAN. [Concomitant]
     Active Substance: LOSARTAN
     Indication: HYPERTENSION
     Dosage: UNK, UNKNOWN
     Route: 065
  2. VIIBRYD [Concomitant]
     Active Substance: VILAZODONE HYDROCHLORIDE
     Indication: BIPOLAR DISORDER
     Dosage: UNK, UNKNOWN
     Route: 065
     Dates: start: 2001
  3. ABILIFY [Concomitant]
     Active Substance: ARIPIPRAZOLE
     Indication: BIPOLAR DISORDER
     Dosage: UNK, UNKNOWN
     Route: 065
  4. HYDROXYZINE [Concomitant]
     Active Substance: HYDROXYZINE\HYDROXYZINE HYDROCHLORIDE
     Indication: ANXIETY
     Dosage: UNK, UNKNOWN
     Route: 065
     Dates: start: 2001
  5. VYVANSE [Suspect]
     Active Substance: LISDEXAMFETAMINE DIMESYLATE
     Indication: BINGE EATING
     Dosage: 50 MG, 1X/DAY:QD
     Route: 048
     Dates: start: 201505, end: 20160207

REACTIONS (6)
  - Diarrhoea [Recovered/Resolved]
  - Abdominal pain upper [Recovered/Resolved]
  - Flatulence [Recovered/Resolved]
  - Fear of eating [Not Recovered/Not Resolved]
  - Vomiting [Recovered/Resolved]
  - Binge eating [Recovered/Resolved]

NARRATIVE: CASE EVENT DATE: 20160204
